FAERS Safety Report 9372671 (Version 1)
Quarter: 2013Q2

REPORT INFORMATION
  Report Type: Report from Study
  Country: US (occurrence: US)
  Receive Date: 20130627
  Receipt Date: 20130627
  Transmission Date: 20140414
  Serious: Yes (Other)
  Sender: FDA-Public Use
  Company Number: US-MYLANLABS-2013S1005038

PATIENT
  Age: 37 Year
  Sex: Female

DRUGS (8)
  1. CLOZAPINE TABLETS [Suspect]
     Indication: PSYCHOTIC DISORDER
     Dates: end: 201303
  2. ZOLOFT [Concomitant]
     Dosage: HAS TAKEN FOR YEARS
  3. LAMICTAL [Concomitant]
     Dosage: HAS TAKEN FOR YEARS
  4. CLONAZEPAM [Concomitant]
     Dosage: HAS TAKEN FOR YEARS
  5. ALBUTEROL [Concomitant]
     Dosage: PROAIR, HAS TAKEN FOR YEARS
  6. LEVOTHYROXINE [Concomitant]
     Dosage: HAS TAKEN FOR YEARS
  7. OMEPRAZOLE [Concomitant]
     Dosage: HAS TAKEN FOR YEARS
  8. DICYCLOMINE [Concomitant]
     Dosage: HAS TAKEN FOR YEARS

REACTIONS (2)
  - Granulocytopenia [Not Recovered/Not Resolved]
  - Leukopenia [Not Recovered/Not Resolved]
